FAERS Safety Report 19022871 (Version 5)
Quarter: 2021Q2

REPORT INFORMATION
  Report Type: Spontaneous
  Country: US (occurrence: US)
  Receive Date: 20210318
  Receipt Date: 20210423
  Transmission Date: 20210717
  Serious: No
  Sender: FDA-Public Use
  Company Number: US-ASTRAZENECA-2021A065948

PATIENT
  Sex: Female

DRUGS (1)
  1. BUDESONIDE AND FORMOTEROL [Suspect]
     Active Substance: BUDESONIDE\FORMOTEROL
     Route: 055
     Dates: start: 20210109

REACTIONS (5)
  - Drug delivery system issue [Unknown]
  - Dyspnoea [Unknown]
  - Histrionic personality disorder [Unknown]
  - Drug dose omission by device [Unknown]
  - Product packaging quantity issue [Unknown]
